FAERS Safety Report 5308924-8 (Version None)
Quarter: 2007Q2

REPORT INFORMATION
  Report Type: 
  Country: None (occurrence: None)
  Receive Date: 20070426
  Receipt Date: 20070416
  Transmission Date: 20071010
  Serious: Yes (Other)
  Sender: FDA-Public Use
  Company Number: US-PFIZER INC-2007010780

PATIENT
  Sex: Female
  Weight: 56.7 kg

DRUGS (4)
  1. LIPITOR [Suspect]
     Indication: BLOOD CHOLESTEROL INCREASED
     Route: 048
     Dates: start: 20061023, end: 20061201
  2. ZYPREXA [Concomitant]
  3. ALL OTHER THERAPEUTIC PRODUCTS [Concomitant]
  4. VITAMINS [Concomitant]

REACTIONS (3)
  - MYALGIA [None]
  - PAIN [None]
  - PAIN IN EXTREMITY [None]
